FAERS Safety Report 4846068-X (Version None)
Quarter: 2005Q4

REPORT INFORMATION
  Report Type: 
  Country: None (occurrence: None)
  Receive Date: 20051202
  Receipt Date: 20051202
  Transmission Date: 20060501
  Serious: No
  Sender: FDA-Public Use
  Company Number: None

PATIENT
  Age: 56 Year
  Sex: Female
  Weight: 69.4003 kg

DRUGS (5)
  1. LEVAQUIN [Suspect]
     Indication: URINARY TRACT INFECTION
     Dosage: 1 TABLET 500MG   ONCE DAILY   PO
     Route: 048
     Dates: start: 20051107, end: 20051114
  2. SEROQUEL [Concomitant]
  3. LEXAPRO [Concomitant]
  4. LAMICTAL [Concomitant]
  5. CLONAZEPAM [Concomitant]

REACTIONS (3)
  - ARTHRALGIA [None]
  - MOBILITY DECREASED [None]
  - TENDON DISORDER [None]
